FAERS Safety Report 11095362 (Version 2)
Quarter: 2019Q3

REPORT INFORMATION
  Report Type: Spontaneous
  Country: US (occurrence: US)
  Receive Date: 20150506
  Receipt Date: 20190722
  Transmission Date: 20191004
  Serious: No
  Sender: FDA-Public Use
  Company Number: US-SA-2015SA036961

PATIENT
  Sex: Female
  Weight: 88.45 kg

DRUGS (6)
  1. APIDRA SOLOSTAR [Suspect]
     Active Substance: INSULIN GLULISINE
     Indication: DIABETES MELLITUS
     Dosage: UNK UNK,UNK
     Route: 065
     Dates: start: 2010
  2. SOLOSTAR [Suspect]
     Active Substance: DEVICE
     Indication: DIABETES MELLITUS
  3. SOLOSTAR [Suspect]
     Active Substance: DEVICE
     Indication: DIABETES MELLITUS
  4. LANTUS SOLOSTAR [Suspect]
     Active Substance: INSULIN GLARGINE
     Indication: DIABETES MELLITUS
     Dosage: 40 DF,UNK
     Route: 065
     Dates: start: 2007
  5. SOLOSTAR [Suspect]
     Active Substance: DEVICE
  6. APIDRA SOLOSTAR [Suspect]
     Active Substance: INSULIN GLULISINE
     Dosage: 40 DF,1X
     Route: 065

REACTIONS (3)
  - Product storage error [Unknown]
  - Inappropriate schedule of product administration [Unknown]
  - Wrong product administered [Unknown]
